FAERS Safety Report 5431745-2 (Version None)
Quarter: 2007Q3

REPORT INFORMATION
  Report Type: 
  Country: None (occurrence: None)
  Receive Date: 20070830
  Receipt Date: 20070822
  Transmission Date: 20080115
  Serious: Yes (Hospitalization)
  Sender: FDA-Public Use
  Company Number: US-SHR-US-2007-020904

PATIENT
  Age: 50 Year
  Sex: Female
  Weight: 89.342 kg

DRUGS (18)
  1. BETASERON [Suspect]
     Indication: RELAPSING-REMITTING MULTIPLE SCLEROSIS
     Dosage: 8 MIU, EVERY 2D
     Route: 058
     Dates: start: 20051119
  2. BETASERON [Suspect]
     Dosage: 8 MIU, EVERY 2D
     Route: 058
     Dates: start: 20070420
  3. TRICOR [Concomitant]
     Dosage: 145 MG/D, UNK
  4. VENLAFAXIINE HCL [Concomitant]
     Dosage: 150 MG/D, UNK
  5. COREG [Concomitant]
     Dosage: 40 MG/D, UNK
  6. LISINOPRIL [Concomitant]
     Dosage: 20 MG/D, UNK
  7. PROTONIX [Concomitant]
     Dosage: 40 MG/D, UNK
  8. FOLIC ACID [Concomitant]
     Dosage: 1 MG/D, UNK
  9. THIAMINE HCL [Concomitant]
     Dosage: 125 MG/D, UNK
  10. LIPITOR [Concomitant]
     Dosage: 80 MG/D, UNK
  11. DEMADEX [Concomitant]
     Dosage: 10 MG/D, UNK
  12. SEROQUEL [Concomitant]
     Dosage: 50 MG/D, UNK
  13. REPLIVA [Concomitant]
     Dosage: 21/7 TAB
  14. DOCUSATE SODIUM [Concomitant]
     Dosage: 200 MG, UNK
  15. ASPIRIN [Concomitant]
     Dosage: 81 MG, UNK
  16. NOVOLOG [Concomitant]
  17. LANTUS [Concomitant]
  18. CORTICOSTEROIDS [Concomitant]
     Dates: start: 20070401, end: 20070401

REACTIONS (2)
  - LOSS OF CONSCIOUSNESS [None]
  - MYOCARDIAL INFARCTION [None]
